FAERS Safety Report 13503517 (Version 1)
Quarter: 2017Q2

REPORT INFORMATION
  Report Type: Spontaneous
  Country: US (occurrence: US)
  Receive Date: 20170502
  Receipt Date: 20170502
  Transmission Date: 20170830
  Serious: No
  Sender: FDA-Public Use
  Company Number: None

PATIENT
  Age: 64 Year
  Sex: Female

DRUGS (1)
  1. ENOXAPARIN SYR 40MG/0.4ML [Suspect]
     Active Substance: ENOXAPARIN

REACTIONS (6)
  - Rash [None]
  - Knee operation [None]
  - Tenderness [None]
  - Rash pruritic [None]
  - Rash erythematous [None]
  - Therapy cessation [None]

NARRATIVE: CASE EVENT DATE: 20170424
